FAERS Safety Report 4467874-X (Version None)
Quarter: 2004Q4

REPORT INFORMATION
  Report Type: 
  Country: None (occurrence: None)
  Receive Date: 20041005
  Receipt Date: 20040929
  Transmission Date: 20050328
  Serious: Yes (Other)
  Sender: FDA-Public Use
  Company Number: 002820

PATIENT
  Age: 80 Year
  Sex: Female

DRUGS (4)
  1. MEDROXYPROGESTERONE ACETATE [Suspect]
     Dates: start: 19700101, end: 20030101
  2. PROVERA [Suspect]
     Dates: start: 19700101, end: 20030101
  3. PREMARIN [Suspect]
     Dates: start: 19700101, end: 20030101
  4. MEDROXYPROGESTERONE ACETATE [Suspect]
     Dates: start: 19990101, end: 20030101

REACTIONS (1)
  - OVARIAN CANCER [None]
